FAERS Safety Report 5334775-4 (Version None)
Quarter: 2007Q2

REPORT INFORMATION
  Report Type: 
  Country: None (occurrence: None)
  Receive Date: 20070525
  Receipt Date: 20070518
  Transmission Date: 20071010
  Serious: Yes (Other)
  Sender: FDA-Public Use
  Company Number: US-GENENTECH-238617

PATIENT
  Sex: Male
  Weight: 79.818 kg

DRUGS (10)
  1. RAPTIVA [Suspect]
     Indication: PSORIASIS
     Dosage: 0.8 ML, 1/WEEK
     Route: 058
     Dates: start: 20050520
  2. CYCLOSPORINE [Concomitant]
     Indication: PSORIASIS
     Dosage: 100 MG, QD
     Route: 048
  3. SORIATANE [Concomitant]
     Indication: PSORIASIS
     Dosage: 25 MG, QOD
     Route: 048
  4. SORIATANE [Concomitant]
     Dosage: 50 MG, QOD
     Route: 048
  5. ADVAIR DISKUS 100/50 [Concomitant]
     Indication: BRONCHITIS CHRONIC
     Dosage: 1-2 PUFF, PRN
  6. ALBUTEROL [Concomitant]
     Indication: DRUG USE FOR UNKNOWN INDICATION
     Dosage: UNK, PRN
  7. LISINOPRIL [Concomitant]
     Indication: HYPERTENSION
     Dosage: UNK, QD
  8. LIPITOR [Concomitant]
     Indication: BLOOD CHOLESTEROL INCREASED
     Dosage: 10 MG, QD
  9. CENTRUM SILVER MULTIVITAMIN [Concomitant]
     Indication: DRUG USE FOR UNKNOWN INDICATION
     Dosage: UNK, QD
  10. MAGNESIUM SULFATE [Concomitant]
     Indication: DRUG USE FOR UNKNOWN INDICATION
     Dosage: 250 MG, QD

REACTIONS (1)
  - BLADDER CANCER [None]
